FAERS Safety Report 8158087-9 (Version None)
Quarter: 2012Q1

REPORT INFORMATION
  Report Type: 
  Country: None (occurrence: None)
  Receive Date: 20120222
  Receipt Date: 20120215
  Transmission Date: 20120608
  Serious: Yes (Hospitalization)
  Sender: FDA-Public Use
  Company Number: US-MERCK-1202USA02578

PATIENT
  Age: 45 Year
  Sex: Female

DRUGS (5)
  1. ISENTRESS [Suspect]
     Indication: HIV INFECTION
     Route: 048
     Dates: start: 20100101
  2. EPZICOM [Suspect]
     Route: 065
     Dates: start: 20100101
  3. METHADONE HCL [Suspect]
     Route: 065
  4. TRICOR [Suspect]
     Indication: BLOOD TRIGLYCERIDES INCREASED
     Route: 065
  5. [THERAPY UNSPECIFIED] [Suspect]
     Indication: HYPERTENSION
     Route: 065

REACTIONS (2)
  - RENAL IMPAIRMENT [None]
  - BLOOD TRIGLYCERIDES INCREASED [None]
